FAERS Safety Report 8343644-7 (Version None)
Quarter: 2012Q2

REPORT INFORMATION
  Report Type: 
  Country: None (occurrence: None)
  Receive Date: 20120508
  Receipt Date: 20120428
  Transmission Date: 20120825
  Serious: Yes (Hospitalization, Other)
  Sender: FDA-Public Use
  Company Number: US-BAYER-2011-100150

PATIENT
  Age: 19 Year
  Sex: Female
  Weight: 56.689 kg

DRUGS (1)
  1. YAZ [Suspect]
     Indication: CONTRACEPTION
     Dosage: UNK
     Dates: start: 20080201, end: 20100101

REACTIONS (3)
  - INJURY [None]
  - CHOLELITHIASIS [None]
  - CHOLECYSTITIS [None]
